FAERS Safety Report 10195629 (Version 2)
Quarter: 2014Q2

REPORT INFORMATION
  Report Type: Spontaneous
  Country: FR (occurrence: FR)
  Receive Date: 20140527
  Receipt Date: 20140612
  Transmission Date: 20141212
  Serious: Yes (Other)
  Sender: FDA-Public Use
  Company Number: FR-ROCHE-1408357

PATIENT
  Age: 69 Year
  Sex: Female

DRUGS (2)
  1. LUCENTIS [Suspect]
     Indication: GLAUCOMA
     Route: 050
     Dates: start: 20090722
  2. OMEPRAZOLE [Concomitant]
     Indication: CHOROID MELANOMA
     Route: 065
     Dates: start: 20080104

REACTIONS (3)
  - Metastases to liver [Unknown]
  - Metastases to skin [Unknown]
  - Off label use [Unknown]
